FAERS Safety Report 10661851 (Version 2)
Quarter: 2014Q4

REPORT INFORMATION
  Report Type: Spontaneous
  Country: CN (occurrence: CN)
  Receive Date: 20141218
  Receipt Date: 20141226
  Transmission Date: 20150529
  Serious: Yes (Hospitalization)
  Sender: FDA-Public Use
  Company Number: CN-BAYER-2014-185449

PATIENT
  Age: 66 Year
  Sex: Male

DRUGS (7)
  1. NOVORAPID [Suspect]
     Active Substance: INSULIN ASPART
     Dosage: 9 IU, QD
     Route: 058
     Dates: start: 20141206
  2. NIFEREX [Concomitant]
     Active Substance: IRON\POLYSACCHARIDES
     Dosage: 0.15 G, QD
     Route: 048
     Dates: start: 20141205
  3. LEVEMIR [Suspect]
     Active Substance: INSULIN DETEMIR
     Dosage: 7 IU, QD
     Route: 058
     Dates: start: 20141208
  4. FOLIC ACID. [Concomitant]
     Active Substance: FOLIC ACID
     Dosage: 5 MG, TID
     Route: 048
     Dates: start: 20141205
  5. VITAMIN B6 [Concomitant]
     Active Substance: PYRIDOXINE HYDROCHLORIDE
     Dosage: 10 MG, TID
     Dates: start: 20141205
  6. EPOETIN BETA [Concomitant]
     Active Substance: ERYTHROPOIETIN
     Dosage: 2000 IU, UNK
     Dates: start: 20141205
  7. AVELOX [Suspect]
     Active Substance: MOXIFLOXACIN HYDROCHLORIDE
     Dosage: 0.4 G, QD
     Route: 041
     Dates: start: 20141209, end: 20141210

REACTIONS (1)
  - Epidermolysis bullosa [Recovering/Resolving]

NARRATIVE: CASE EVENT DATE: 20141211
